FAERS Safety Report 5944617-1 (Version None)
Quarter: 2008Q4

REPORT INFORMATION
  Report Type: 
  Country: None (occurrence: None)
  Receive Date: 20081107
  Receipt Date: 20081028
  Transmission Date: 20090506
  Serious: Yes (Other)
  Sender: FDA-Public Use
  Company Number: JP-AVENTIS-200813375JP

PATIENT
  Age: 73 Year
  Sex: Female

DRUGS (1)
  1. CLEXANE [Suspect]
     Dosage: DOSE: 2000 UNITS
     Dates: start: 20080723, end: 20080801

REACTIONS (3)
  - ALANINE AMINOTRANSFERASE INCREASED [None]
  - ASPARTATE AMINOTRANSFERASE INCREASED [None]
  - LIVER INJURY [None]
